FAERS Safety Report 13360371 (Version 1)
Quarter: 2017Q1

REPORT INFORMATION
  Report Type: Spontaneous
  Country: CD (occurrence: CD)
  Receive Date: 20170322
  Receipt Date: 20170322
  Transmission Date: 20170429
  Serious: Yes (Death)
  Sender: FDA-Public Use
  Company Number: CD-JNJFOC-20170317491

PATIENT
  Age: 48 Year
  Sex: Female

DRUGS (17)
  1. EFAVIRENZ [Concomitant]
     Active Substance: EFAVIRENZ
  2. TENOFOVIR [Concomitant]
     Active Substance: TENOFOVIR
  3. BEDAQUILINE [Suspect]
     Active Substance: BEDAQUILINE
     Indication: TUBERCULOSIS
     Route: 048
     Dates: start: 20161228
  4. INH [Concomitant]
     Active Substance: ISONIAZID
     Indication: TUBERCULOSIS
  5. DAKTARIN [Concomitant]
     Active Substance: MICONAZOLE NITRATE
  6. SEKROL [Concomitant]
  7. MOTILIUM [Concomitant]
     Active Substance: DOMPERIDONE
  8. PARA-AMINOSALICYLIC ACID [Concomitant]
     Active Substance: AMINOSALICYLIC ACID
     Indication: TUBERCULOSIS
  9. LINEZOLID. [Concomitant]
     Active Substance: LINEZOLID
     Indication: TUBERCULOSIS
  10. AMIKACIN [Concomitant]
     Active Substance: AMIKACIN
     Indication: TUBERCULOSIS
  11. PYRAZINAMIDE. [Concomitant]
     Active Substance: PYRAZINAMIDE
     Indication: TUBERCULOSIS
  12. FLUCONAZOLE. [Concomitant]
     Active Substance: FLUCONAZOLE
  13. CLOFAZIMINE [Concomitant]
     Active Substance: CLOFAZIMINE
     Indication: TUBERCULOSIS
  14. VITAMIN B6 [Concomitant]
     Active Substance: PYRIDOXINE HYDROCHLORIDE
  15. LAMIVUDINE. [Concomitant]
     Active Substance: LAMIVUDINE
  16. COTRIMOXAZOL [Concomitant]
     Active Substance: SULFAMETHOXAZOLE\TRIMETHOPRIM
  17. ASCORBIC ACID. [Concomitant]
     Active Substance: ASCORBIC ACID

REACTIONS (12)
  - Hypotension [Unknown]
  - Diarrhoea [Unknown]
  - Vertigo [Unknown]
  - Asthenia [Unknown]
  - Oedema peripheral [Unknown]
  - Vomiting [Unknown]
  - Oral herpes [Unknown]
  - Swelling face [Unknown]
  - Melaena [Unknown]
  - Candida infection [Unknown]
  - Electrolyte imbalance [Fatal]
  - Genital ulceration [Unknown]

NARRATIVE: CASE EVENT DATE: 20170125
